FAERS Safety Report 24702848 (Version 1)
Quarter: 2024Q4

REPORT INFORMATION
  Report Type: Spontaneous
  Country: AU (occurrence: AU)
  Receive Date: 20241205
  Receipt Date: 20241205
  Transmission Date: 20250115
  Serious: Yes (Other)
  Sender: BAYER HEALTHCARE PHARMACEUTICALS INC.
  Company Number: AU-BAYER-2024A172199

PATIENT
  Age: 61 Year
  Sex: Male

DRUGS (3)
  1. CIPROFLOXACIN [Suspect]
     Active Substance: CIPROFLOXACIN
     Dosage: 400 MG, TID
     Route: 042
  2. TIGECYCLINE [Concomitant]
     Active Substance: TIGECYCLINE
     Dosage: 200 MG
     Route: 042
  3. COTRIMOXAZOLE [Concomitant]
     Active Substance: SULFAMETHOXAZOLE\TRIMETHOPRIM
     Dosage: 160/800 MG
     Route: 048

REACTIONS (1)
  - Pathogen resistance [None]
